FAERS Safety Report 5349500-0 (Version None)
Quarter: 2007Q2

REPORT INFORMATION
  Report Type: 
  Country: None (occurrence: None)
  Receive Date: 20070607
  Receipt Date: 20070529
  Transmission Date: 20071010
  Serious: Yes (Death, Other)
  Sender: FDA-Public Use
  Company Number: AT-ELI_LILLY_AND_COMPANY-AT200706000547

PATIENT
  Age: 48 Year
  Sex: Male

DRUGS (1)
  1. DROTRECOGIN ALFA (ACTIVATED) [Suspect]
     Indication: STAPHYLOCOCCAL SEPSIS

REACTIONS (3)
  - BONE MARROW TUMOUR CELL INFILTRATION [None]
  - MALIGNANT NEOPLASM PROGRESSION [None]
  - PULMONARY EMBOLISM [None]
